FAERS Safety Report 7895537-7 (Version None)
Quarter: 2011Q4

REPORT INFORMATION
  Report Type: 
  Country: None (occurrence: None)
  Receive Date: 20111106
  Receipt Date: 20110829
  Transmission Date: 20120403
  Serious: No
  Sender: FDA-Public Use
  Company Number: US-AMGEN-USASP2011044125

PATIENT
  Age: 62 Year
  Sex: Male
  Weight: 96.145 kg

DRUGS (16)
  1. LASIX [Concomitant]
     Dosage: 20 MG, UNK
     Route: 048
  2. POTASSIUM [Concomitant]
     Dosage: 75 MG, UNK
     Route: 048
  3. METHOTREXATE [Concomitant]
     Dosage: 2.5 MG, UNK
     Route: 048
  4. GLIMEPIRIDE [Concomitant]
     Dosage: 2 MG, UNK
     Route: 048
  5. MULTIVITAMIN                       /00097801/ [Concomitant]
     Route: 048
  6. ASPIRIN [Concomitant]
     Dosage: 81 MG, UNK
  7. JANUVIA [Concomitant]
     Dosage: 25 MG, UNK
     Route: 048
  8. ENBREL [Suspect]
     Indication: PRODUCT USED FOR UNKNOWN INDICATION
     Dosage: 50 MG, QWK
     Route: 058
  9. LOVASTATIN [Concomitant]
     Dosage: 40 MG, UNK
     Route: 048
  10. LEVOTHYROXINE SODIUM [Concomitant]
     Dosage: 500 MUG, UNK
  11. FOLIC ACID [Concomitant]
     Dosage: 20 MG, UNK
     Route: 048
  12. PREDNISONE [Concomitant]
     Dosage: 2.5 MG, UNK
     Route: 048
  13. METFORMIN HCL [Concomitant]
     Dosage: 1000 MG, UNK
     Route: 048
  14. FELODIPINE [Concomitant]
     Dosage: 2.5 MG, UNK
     Route: 048
  15. FISH OIL [Concomitant]
     Dosage: UNK
     Route: 048
  16. OMEPRAZOLE [Concomitant]
     Dosage: 20 MG, UNK
     Route: 048

REACTIONS (1)
  - INJECTION SITE RASH [None]
